FAERS Safety Report 8505759-X (Version None)
Quarter: 2012Q3

REPORT INFORMATION
  Report Type: 
  Country: None (occurrence: None)
  Receive Date: 20120712
  Receipt Date: 20120706
  Transmission Date: 20120928
  Serious: Yes (Hospitalization, Other)
  Sender: FDA-Public Use
  Company Number: US-BAYER-2011-041756

PATIENT
  Age: 21 Year
  Sex: Female
  Weight: 155 kg

DRUGS (19)
  1. YAZ [Suspect]
     Indication: PREMENSTRUAL SYNDROME
  2. MEDROL [Concomitant]
     Dosage: UNK
     Dates: start: 20070601
  3. PREVACID [Concomitant]
     Dosage: UNK
     Dates: start: 20070701
  4. LEVAQUIN [Concomitant]
     Dosage: UNK
     Dates: start: 20070701
  5. PROMETHAZINE [Concomitant]
     Dosage: UNK
     Dates: start: 20070701
  6. AMOXICILLIN AND CLAVULANATE POTASSIUM [Concomitant]
     Dosage: UNK
     Dates: start: 20070901
  7. ZONISAMIDE [Concomitant]
  8. YAZ [Suspect]
  9. FLONASE [Concomitant]
     Dosage: UNK
     Dates: start: 20070701
  10. LORATADINE [Concomitant]
     Dosage: UNK
     Dates: start: 20070801
  11. OMNICEF [Concomitant]
     Dosage: UNK
     Dates: start: 20070601
  12. CHANTIX [Concomitant]
     Dosage: UNK
     Dates: start: 20070701
  13. LACTULOSE [Concomitant]
     Dosage: UNK
     Dates: start: 20070701
  14. MIRTAZAPINE [Concomitant]
     Dosage: UNK
     Dates: start: 20070701
  15. CIPROFLOXACIN HCL [Concomitant]
     Dosage: UNK
     Dates: start: 20070801
  16. BACTRIM [Concomitant]
     Dosage: UNK
     Dates: start: 20070801
  17. MOBIC [Concomitant]
     Dosage: UNK
     Dates: start: 20070701
  18. ABILIFY [Concomitant]
     Dosage: UNK
     Dates: start: 20070601
  19. SERTRALINE HYDROCHLORIDE [Concomitant]
     Dosage: UNK
     Dates: start: 20070701

REACTIONS (16)
  - ABDOMINAL DISTENSION [None]
  - EMOTIONAL DISTRESS [None]
  - PAIN [None]
  - SCAR [None]
  - FLATULENCE [None]
  - DIARRHOEA [None]
  - INJURY [None]
  - CONSTIPATION [None]
  - ATTENTION DEFICIT/HYPERACTIVITY DISORDER [None]
  - BILIARY DYSKINESIA [None]
  - DYSPEPSIA [None]
  - DEPRESSION [None]
  - POST-TRAUMATIC STRESS DISORDER [None]
  - BIPOLAR DISORDER [None]
  - GALLBLADDER DISORDER [None]
  - ANXIETY [None]
